FAERS Safety Report 7353024-9 (Version None)
Quarter: 2011Q1

REPORT INFORMATION
  Report Type: 
  Country: None (occurrence: None)
  Receive Date: 20110315
  Receipt Date: 20110308
  Transmission Date: 20110831
  Serious: Yes (Other)
  Sender: FDA-Public Use
  Company Number: A0917179A

PATIENT
  Sex: Male

DRUGS (7)
  1. KLONOPIN [Concomitant]
  2. RISPERDAL [Concomitant]
  3. TRAZODONE [Concomitant]
  4. EFFEXOR XR [Concomitant]
  5. WELLBUTRIN [Concomitant]
  6. LAMICTAL [Suspect]
     Indication: BIPOLAR DISORDER
     Dosage: 200MG PER DAY
     Route: 048
     Dates: start: 20060101
  7. LITHIUM [Concomitant]

REACTIONS (8)
  - WITHDRAWAL SYNDROME [None]
  - MOOD ALTERED [None]
  - VISUAL ACUITY REDUCED [None]
  - VISUAL IMPAIRMENT [None]
  - DYSPHEMIA [None]
  - VISION BLURRED [None]
  - DISTURBANCE IN ATTENTION [None]
  - TREMOR [None]
